FAERS Safety Report 25103197 (Version 1)
Quarter: 2025Q1

REPORT INFORMATION
  Report Type: Spontaneous
  Country: GB (occurrence: GB)
  Receive Date: 20250321
  Receipt Date: 20250321
  Transmission Date: 20250409
  Serious: Yes (Hospitalization, Other)
  Sender: RANBAXY
  Company Number: GB-MHRA-MED-202503082051487460-FTGVZ

PATIENT
  Age: 43 Year
  Sex: Male

DRUGS (1)
  1. VENLAFAXINE [Suspect]
     Active Substance: VENLAFAXINE HYDROCHLORIDE
     Indication: Depression
     Route: 065

REACTIONS (3)
  - Medication error [Unknown]
  - Weight decreased [Not Recovered/Not Resolved]
  - Completed suicide [Not Recovered/Not Resolved]

NARRATIVE: CASE EVENT DATE: 20230909
